FAERS Safety Report 5396008-2 (Version None)
Quarter: 2007Q3

REPORT INFORMATION
  Report Type: 
  Country: None (occurrence: None)
  Receive Date: 20070718
  Receipt Date: 20070320
  Transmission Date: 20080115
  Serious: Yes (Hospitalization, Other)
  Sender: FDA-Public Use
  Company Number: 2006128288

PATIENT
  Age: 62 Year
  Sex: Male
  Weight: 68 kg

DRUGS (5)
  1. CELEBREX [Suspect]
     Indication: MYALGIA
     Dates: start: 20040312
  2. ALBUTEROL [Concomitant]
  3. ZANTAC 150 [Concomitant]
  4. DARVOCET [Concomitant]
  5. METHOCARBAMOL [Concomitant]

REACTIONS (1)
  - LACUNAR INFARCTION [None]
